FAERS Safety Report 7783367-6 (Version None)
Quarter: 2011Q3

REPORT INFORMATION
  Report Type: 
  Country: None (occurrence: None)
  Receive Date: 20110928
  Receipt Date: 20110922
  Transmission Date: 20111222
  Serious: Yes (Death, Life-Threatening, Hospitalization)
  Sender: FDA-Public Use
  Company Number: JP-BAYER-200913594BYL

PATIENT
  Age: 61 Year
  Sex: Male
  Weight: 59 kg

DRUGS (13)
  1. URSO 250 [Concomitant]
     Dosage: SINCE BEFORE ADMINISTRATION
     Route: 048
  2. FAMOTIDINE [Concomitant]
     Dosage: SINCE BEFORE ADMINISTRATION
     Route: 048
  3. PROPETO [Concomitant]
     Indication: PROPHYLAXIS
     Route: 061
     Dates: start: 20090701
  4. ADOFEED [Concomitant]
     Indication: BACK PAIN
     Dosage: 2-3/DAY
     Route: 062
     Dates: start: 20090703
  5. NEXAVAR [Suspect]
     Indication: HEPATIC NEOPLASM MALIGNANT
     Route: 048
     Dates: start: 20090701, end: 20090812
  6. NEXAVAR [Suspect]
     Dosage: 400 MG (DAILY DOSE), , ORAL
     Route: 048
     Dates: start: 20090813, end: 20090826
  7. SEVEN EP [Concomitant]
     Dosage: SINCE BEFORE ADMINISTRATION
     Route: 048
  8. MARZULENE [Concomitant]
     Dosage: SINCE BEFORE ADMINISTRATION
     Route: 048
  9. PROPETO [Concomitant]
  10. SELTEPNON [Concomitant]
     Dosage: 150 MG (DAILY DOSE), , ORAL
     Route: 048
     Dates: start: 20090715
  11. TAGAMET [Concomitant]
     Dosage: SINCE BEFORE ADMINISTRATION
     Route: 048
  12. NEXAVAR [Suspect]
     Route: 048
     Dates: start: 20090827, end: 20090903
  13. AMINO ACIDS,INCL COMBINATIONS WITH POLYPEPTID [Concomitant]
     Dosage: 3 DF (DAILY DOSE), , ORAL
     Route: 048
     Dates: start: 20090709

REACTIONS (8)
  - ASCITES [None]
  - LIVER DISORDER [None]
  - JAUNDICE [None]
  - DIARRHOEA [None]
  - BACK PAIN [None]
  - MALIGNANT ASCITES [None]
  - MUSCLE SPASMS [None]
  - HEPATIC NEOPLASM MALIGNANT [None]
